FAERS Safety Report 8226612 (Version 3)
Quarter: 2013Q1

REPORT INFORMATION
  Report Type: Spontaneous
  Country: US (occurrence: US)
  Receive Date: 20111103
  Receipt Date: 20130321
  Transmission Date: 20140127
  Serious: Yes (Hospitalization, Other)
  Sender: FDA-Public Use
  Company Number: US-ASTRAZENECA-2011SE64984

PATIENT
  Age: 64 Year
  Sex: Male

DRUGS (1)
  1. NEXIUM [Suspect]
     Route: 048

REACTIONS (4)
  - Labyrinthitis [Unknown]
  - Bladder cancer [Unknown]
  - Gastrooesophageal reflux disease [Unknown]
  - Pain [Unknown]
